FAERS Safety Report 5103706-4 (Version None)
Quarter: 2006Q3

REPORT INFORMATION
  Report Type: 
  Country: None (occurrence: None)
  Receive Date: 20060911
  Receipt Date: 20060911
  Transmission Date: 20061208
  Serious: No
  Sender: FDA-Public Use
  Company Number: None

PATIENT
  Sex: Male
  Weight: 82.5547 kg

DRUGS (11)
  1. PRAZOSIN HCL [Suspect]
     Indication: NIGHTMARE
     Dosage: 5MG 2-3 CAPS QHS PO
     Route: 048
     Dates: start: 20060321, end: 20060908
  2. HYDROCHLOROTHIAZIDE [Concomitant]
  3. LAMOTRIGINE [Concomitant]
  4. LISINOPRIL [Concomitant]
  5. LITHIUM CARBONATE [Concomitant]
  6. OLANZAPINE [Concomitant]
  7. POTASSIUM CL [Concomitant]
  8. . [Concomitant]
  9. PSEUDOEPHEDRINE HCL [Concomitant]
  10. VALPROIC ACID [Concomitant]
  11. VARDENAFIL HCL [Concomitant]

REACTIONS (1)
  - PRIAPISM [None]
